FAERS Safety Report 8070596-X (Version None)
Quarter: 2012Q1

REPORT INFORMATION
  Report Type: 
  Country: None (occurrence: None)
  Receive Date: 20120125
  Receipt Date: 20120113
  Transmission Date: 20120608
  Serious: Yes (Other)
  Sender: FDA-Public Use
  Company Number: PHHY2011NL32549

PATIENT
  Sex: Male

DRUGS (10)
  1. CASODEX [Concomitant]
     Dosage: 5450 MG, UNK
  2. AVODART [Concomitant]
     Dosage: 0.5 MG, UNK
  3. PREDNISONE TAB [Concomitant]
     Dosage: 5 MG, UNK
  4. ESTRACYT [Concomitant]
     Dosage: 140 MG, UNK
  5. ZOMETA [Suspect]
     Indication: PROSTATE CANCER METASTATIC
     Dosage: 4MG/5ML PER 28 DAYS, IN 20 MINUTES
     Dates: start: 20100413
  6. ZOMETA [Suspect]
     Dosage: 4MG/100ML PER 28 DAYS, IN 20 MINUTES
     Dates: start: 20111125
  7. LEUPROLIDE ACETATE [Concomitant]
  8. ZOMETA [Suspect]
     Dosage: 4MG/5ML PER 28 DAYS, IN 20 MINUTES
     Dates: start: 20110415
  9. ZOMETA [Suspect]
     Dosage: 4MG/5ML PER 28 DAYS, IN 20 MINUTES
     Dates: start: 20110318
  10. ZOMETA [Suspect]
     Dosage: 4MG/100ML PER 28 DAYS, IN 20 MINUTES
     Dates: start: 20111222

REACTIONS (2)
  - PROSTATIC SPECIFIC ANTIGEN INCREASED [None]
  - TERMINAL STATE [None]
